FAERS Safety Report 12858985 (Version 2)
Quarter: 2016Q4

REPORT INFORMATION
  Report Type: Report from Study
  Country: DE (occurrence: DE)
  Receive Date: 20161018
  Receipt Date: 20161026
  Transmission Date: 20170207
  Serious: Yes (Hospitalization, Other)
  Sender: FDA-Public Use
  Company Number: DE-B.I. PHARMACEUTICALS,INC./RIDGEFIELD-2016-BI-51804BI

PATIENT
  Age: 77 Year
  Sex: Female
  Weight: 90 kg

DRUGS (2)
  1. ASA [Concomitant]
     Active Substance: ASPIRIN
     Indication: ISCHAEMIC STROKE
     Route: 048
     Dates: start: 20151019, end: 20160806
  2. BLINDED DABIGATRAN [Suspect]
     Active Substance: DABIGATRAN ETEXILATE
     Indication: ISCHAEMIC STROKE
     Route: 048
     Dates: start: 20151019, end: 20160806

REACTIONS (4)
  - Status epilepticus [Recovered/Resolved]
  - Delirium [Recovered/Resolved]
  - Lactic acidosis [Recovered/Resolved]
  - Atrial fibrillation [Not Recovered/Not Resolved]

NARRATIVE: CASE EVENT DATE: 20160806
